FAERS Safety Report 20058835 (Version 1)
Quarter: 2021Q4

REPORT INFORMATION
  Report Type: Spontaneous
  Country: PL (occurrence: PL)
  Receive Date: 20211111
  Receipt Date: 20211111
  Transmission Date: 20220303
  Serious: Yes (Other)
  Sender: FDA-Public Use
  Company Number: PL-NOVARTISPH-NVSC2021PL254153

PATIENT
  Age: 49 Year
  Sex: Female

DRUGS (3)
  1. PANTOPRAZOLE SODIUM [Suspect]
     Active Substance: PANTOPRAZOLE SODIUM
     Indication: Product used for unknown indication
     Route: 065
  2. METHOTREXATE [Suspect]
     Active Substance: METHOTREXATE
     Indication: Product used for unknown indication
     Route: 065
  3. DICLOFENAC SODIUM [Suspect]
     Active Substance: DICLOFENAC SODIUM
     Indication: Product used for unknown indication
     Route: 065

REACTIONS (6)
  - Steroid diabetes [Unknown]
  - Systemic mastocytosis [Unknown]
  - Chronic myelomonocytic leukaemia [Unknown]
  - Leukocytosis [Unknown]
  - Splenomegaly [Unknown]
  - Monocytosis [Unknown]

NARRATIVE: CASE EVENT DATE: 20210201
